FAERS Safety Report 6415776-1 (Version None)
Quarter: 2009Q4

REPORT INFORMATION
  Report Type: 
  Country: None (occurrence: None)
  Receive Date: 20091022
  Receipt Date: 20091016
  Transmission Date: 20100525
  Serious: Yes (Other)
  Sender: FDA-Public Use
  Company Number: 2009JP006288

PATIENT
  Sex: Female

DRUGS (3)
  1. VESICARE [Suspect]
     Indication: POLLAKIURIA
     Dosage: 5 MG, /D, ORAL
     Route: 048
  2. SEROQUEL [Concomitant]
  3. ARICEPT [Concomitant]

REACTIONS (2)
  - HYDRONEPHROSIS [None]
  - URINARY RETENTION [None]
